FAERS Safety Report 19887305 (Version 1)
Quarter: 2021Q3

REPORT INFORMATION
  Report Type: Spontaneous
  Country: ES (occurrence: ES)
  Receive Date: 20210928
  Receipt Date: 20210928
  Transmission Date: 20211014
  Serious: Yes (Hospitalization, Other)
  Sender: FDA-Public Use
  Company Number: ES-TEVA-2021-ES-1957443

PATIENT
  Age: 36 Year
  Sex: Male

DRUGS (3)
  1. ETOPOSIDO (518A) [Suspect]
     Active Substance: ETOPOSIDE
     Indication: TESTIS CANCER
     Dosage: 200 MG
     Route: 065
     Dates: start: 20210412, end: 20210416
  2. BLEOMICINA (68A) [Suspect]
     Active Substance: BLEOMYCIN SULFATE
     Indication: TESTIS CANCER
     Dosage: 30 MG
     Route: 065
     Dates: start: 20210412, end: 20210412
  3. CISPLATINO (644A) [Suspect]
     Active Substance: CISPLATIN
     Indication: TESTIS CANCER
     Dosage: 40 MG
     Route: 065
     Dates: start: 20210412, end: 20210416

REACTIONS (1)
  - Acute myocardial infarction [Recovered/Resolved]

NARRATIVE: CASE EVENT DATE: 20210419
